FAERS Safety Report 25214906 (Version 1)
Quarter: 2025Q2

REPORT INFORMATION
  Report Type: Spontaneous
  Country: US (occurrence: US)
  Receive Date: 20250418
  Receipt Date: 20250418
  Transmission Date: 20250716
  Serious: Yes (Other)
  Sender: Harrow Health
  Company Number: US-HARROW-HAR-2025-US-00098

PATIENT
  Age: 62 Year
  Sex: Female

DRUGS (2)
  1. NATACYN [Suspect]
     Active Substance: NATAMYCIN
     Indication: Fungal infection
     Route: 047
     Dates: start: 202407
  2. NATACYN [Suspect]
     Active Substance: NATAMYCIN
     Indication: Infection prophylaxis

REACTIONS (6)
  - Corneal perforation [Recovered/Resolved]
  - Corneal transplant [Unknown]
  - Eye infection fungal [Recovered/Resolved]
  - Therapy responder [Unknown]
  - Product temperature excursion issue [Recovered/Resolved]
  - Product quality issue [Recovered/Resolved]

NARRATIVE: CASE EVENT DATE: 20240701
